FAERS Safety Report 10156657 (Version 1)
Quarter: 2014Q2

REPORT INFORMATION
  Report Type: Spontaneous
  Country: US (occurrence: None)
  Receive Date: 20140506
  Receipt Date: 20140506
  Transmission Date: 20141212
  Serious: Yes (Hospitalization)
  Sender: FDA-Public Use
  Company Number: None

PATIENT
  Age: 44 Year
  Sex: Female

DRUGS (2)
  1. ACETAMINOPHEN [Suspect]
     Indication: SUICIDE ATTEMPT
     Dosage: 3 BOTTLE?ONCE?PO
     Route: 048
     Dates: start: 20130208
  2. CITALOPRAM [Concomitant]

REACTIONS (3)
  - Suicide attempt [None]
  - Liver injury [None]
  - Incorrect dose administered [None]
